FAERS Safety Report 5782969-6 (Version None)
Quarter: 2008Q2

REPORT INFORMATION
  Report Type: 
  Country: None (occurrence: None)
  Receive Date: 20080619
  Receipt Date: 20080619
  Transmission Date: 20081010
  Serious: No
  Sender: FDA-Public Use
  Company Number: None

PATIENT

DRUGS (1)
  1. TIMOLOL MALEATE 0.25 % SOLUTION [Suspect]
     Dosage: (OPHTHALMIC)
     Route: 047

REACTIONS (4)
  - ASTHENIA [None]
  - CONDITION AGGRAVATED [None]
  - INTRAOCULAR PRESSURE DECREASED [None]
  - MYASTHENIA GRAVIS [None]
